FAERS Safety Report 6174949-6 (Version None)
Quarter: 2009Q2

REPORT INFORMATION
  Report Type: 
  Country: None (occurrence: None)
  Receive Date: 20090430
  Receipt Date: 20081020
  Transmission Date: 20091009
  Serious: No
  Sender: FDA-Public Use
  Company Number: US-ASTRAZENECA-2008UW23236

PATIENT
  Age: 80 Year
  Sex: Female

DRUGS (6)
  1. NEXIUM [Suspect]
     Indication: REFLUX OESOPHAGITIS
     Dosage: DAILY
     Route: 048
  2. LANTUS [Concomitant]
  3. NOVALOG [Concomitant]
  4. SYNTHROID [Concomitant]
  5. OSCAL [Concomitant]
  6. ASPIRIN [Concomitant]

REACTIONS (3)
  - ABDOMINAL DISTENSION [None]
  - BLOOD GLUCOSE INCREASED [None]
  - VOMITING [None]
